FAERS Safety Report 8995652 (Version 1)
Quarter: 2013Q1

REPORT INFORMATION
  Report Type: Spontaneous
  Country: US (occurrence: US)
  Receive Date: 20130103
  Receipt Date: 20130103
  Transmission Date: 20140127
  Serious: No
  Sender: FDA-Public Use
  Company Number: US-ABBOTT-12P-163-0946085-00

PATIENT
  Sex: Male
  Weight: 101.7 kg

DRUGS (3)
  1. SYNTHROID [Suspect]
     Indication: HYPERTHYROIDISM
     Dates: start: 2009, end: 201205
  2. SYNTHROID [Suspect]
     Indication: HYPERTHYROIDISM
     Dates: start: 201205
  3. LITHIUM [Concomitant]
     Indication: BIPOLAR DISORDER

REACTIONS (5)
  - Mood swings [Not Recovered/Not Resolved]
  - Weight increased [Not Recovered/Not Resolved]
  - Dyspnoea [Not Recovered/Not Resolved]
  - Palpitations [Not Recovered/Not Resolved]
  - Inflammation [Recovered/Resolved]
